FAERS Safety Report 16488734 (Version 1)
Quarter: 2019Q2

REPORT INFORMATION
  Report Type: Report from Study
  Country: US (occurrence: US)
  Receive Date: 20190627
  Receipt Date: 20190627
  Transmission Date: 20190711
  Serious: Yes (Other)
  Sender: FDA-Public Use
  Company Number: US-ACTELION-A-US2018-183451

PATIENT
  Sex: Male
  Weight: 93.42 kg

DRUGS (2)
  1. OPSUMIT [Suspect]
     Active Substance: MACITENTAN
     Indication: PULMONARY ARTERIAL HYPERTENSION
     Dosage: 10 MG, QD
     Route: 048
     Dates: start: 20180911
  2. OFEV [Concomitant]
     Active Substance: NINTEDANIB

REACTIONS (7)
  - Weight decreased [Unknown]
  - Transplant evaluation [Unknown]
  - Diarrhoea [Unknown]
  - Cough [Unknown]
  - Decreased appetite [Unknown]
  - Dyspnoea [Unknown]
  - Productive cough [Unknown]
